FAERS Safety Report 9909169 (Version 1)
Quarter: 2014Q1

REPORT INFORMATION
  Report Type: Spontaneous
  Country: US (occurrence: None)
  Receive Date: 20140212
  Receipt Date: 20140212
  Transmission Date: 20141002
  Serious: No
  Sender: FDA-Public Use
  Company Number: 2014P1000994

PATIENT
  Age: 29 Year
  Sex: Male

DRUGS (4)
  1. CITALOPRAM [Suspect]
  2. ALIMEMAZINE [Suspect]
  3. CARBAMAZEPINE [Suspect]
  4. HYDROXYZINE [Suspect]

REACTIONS (2)
  - Completed suicide [None]
  - Toxicity to various agents [None]
